FAERS Safety Report 19071873 (Version 2)
Quarter: 2021Q3

REPORT INFORMATION
  Report Type: Spontaneous
  Country: US (occurrence: US)
  Receive Date: 20210330
  Receipt Date: 20210811
  Transmission Date: 20211014
  Serious: No
  Sender: FDA-Public Use
  Company Number: US-SA-2021SA103970

PATIENT
  Age: 59 Year
  Sex: Female

DRUGS (6)
  1. DUPIXENT [Suspect]
     Active Substance: DUPILUMAB
     Indication: ASTHMA
     Dosage: 300 MG, QOW
     Route: 058
     Dates: start: 20200421
  2. SYMBICORT [Concomitant]
     Active Substance: BUDESONIDE\FORMOTEROL FUMARATE DIHYDRATE
  3. FORMOTEROL [Concomitant]
     Active Substance: FORMOTEROL
  4. ALBUTEROL SULFATE. [Concomitant]
     Active Substance: ALBUTEROL SULFATE
  5. BUDESONIDE. [Concomitant]
     Active Substance: BUDESONIDE
  6. EZETIMIBE. [Concomitant]
     Active Substance: EZETIMIBE

REACTIONS (4)
  - Injection site rash [Unknown]
  - Wheezing [Unknown]
  - Diarrhoea [Unknown]
  - Product use issue [Unknown]

NARRATIVE: CASE EVENT DATE: 20200421
